FAERS Safety Report 9369776 (Version 3)
Quarter: 2013Q3

REPORT INFORMATION
  Report Type: Spontaneous
  Country: US (occurrence: US)
  Receive Date: 20130626
  Receipt Date: 20130725
  Transmission Date: 20140515
  Serious: Yes (Hospitalization)
  Sender: FDA-Public Use
  Company Number: US-ASTELLAS-2013US006564

PATIENT
  Age: 77 Year
  Sex: Male

DRUGS (2)
  1. XTANDI [Suspect]
     Indication: PROSTATE CANCER
     Dosage: 160 MG, UID/QD
     Route: 048
     Dates: start: 20130517
  2. XTANDI [Suspect]
     Dosage: 160 MG, UID/QD
     Route: 048

REACTIONS (3)
  - Blood potassium decreased [Unknown]
  - Pneumonia [Unknown]
  - Prostatic specific antigen increased [Unknown]
